FAERS Safety Report 4483008-X (Version None)
Quarter: 2004Q3

REPORT INFORMATION
  Report Type: 
  Country: None (occurrence: None)
  Receive Date: 20040921
  Receipt Date: 20040527
  Transmission Date: 20050211
  Serious: Yes (Other)
  Sender: FDA-Public Use
  Company Number: 163-20785-04060027

PATIENT
  Age: 83 Year
  Sex: Female
  Weight: 65.5 kg

DRUGS (6)
  1. THALOMID [Suspect]
     Indication: NON-SMALL CELL LUNG CANCER
     Dosage: 200-400MG, DAILY, ORAL
     Route: 048
     Dates: start: 20031203, end: 20031222
  2. PACLITAXEL [Suspect]
     Indication: NON-SMALL CELL LUNG CANCER
     Dosage: 225 MG/M2, EVERY 21 DAYS X2,
     Dates: start: 20031203, end: 20031223
  3. CARBOPLATIN [Suspect]
     Indication: NON-SMALL CELL LUNG CANCER
     Dosage: EVERY 21 DAYS X2, INTRAVENOUS
     Route: 042
     Dates: start: 20031203, end: 20031223
  4. LOTENSIN [Concomitant]
  5. SYNTHROID [Concomitant]
  6. RADIATION THERAPY [Concomitant]

REACTIONS (5)
  - AMNESIA [None]
  - ATAXIA [None]
  - CHEST PAIN [None]
  - MEMORY IMPAIRMENT [None]
  - SYNCOPE [None]
